FAERS Safety Report 17785453 (Version 1)
Quarter: 2020Q2

REPORT INFORMATION
  Report Type: Spontaneous
  Country: US (occurrence: US)
  Receive Date: 20200514
  Receipt Date: 20200514
  Transmission Date: 20200714
  Serious: Yes (Other)
  Sender: FDA-Public Use
  Company Number: None

PATIENT
  Age: 70 Year
  Sex: Female
  Weight: 76.5 kg

DRUGS (11)
  1. PAROXETINE. [Concomitant]
     Active Substance: PAROXETINE
  2. FENOFIBRATE. [Concomitant]
     Active Substance: FENOFIBRATE
  3. TEAR DUCT PLUGS [Concomitant]
  4. APSIRIN [Concomitant]
     Active Substance: ASPIRIN
  5. PLAQUENIL [Concomitant]
     Active Substance: HYDROXYCHLOROQUINE SULFATE
  6. GABAPENTIN. [Concomitant]
     Active Substance: GABAPENTIN
  7. HYDROCODONE/ACETAMINOPHEN [Concomitant]
     Active Substance: ACETAMINOPHEN\HYDROCODONE
  8. MOISTURE EYE DROPS [Concomitant]
  9. METOPROLOL. [Suspect]
     Active Substance: METOPROLOL
     Indication: ATRIAL FIBRILLATION
  10. XANAX [Concomitant]
     Active Substance: ALPRAZOLAM
  11. ROPINIROLE. [Concomitant]
     Active Substance: ROPINIROLE

REACTIONS (3)
  - Scar [None]
  - Eyelid exfoliation [None]
  - Dry eye [None]

NARRATIVE: CASE EVENT DATE: 20190526
